FAERS Safety Report 10301283 (Version 1)
Quarter: 2014Q3

REPORT INFORMATION
  Report Type: Spontaneous
  Country: US (occurrence: None)
  Receive Date: 20140708
  Receipt Date: 20140708
  Transmission Date: 20150326
  Serious: Yes (Hospitalization)
  Sender: FDA-Public Use
  Company Number: None

PATIENT
  Age: 53 Year
  Sex: Male
  Weight: 61 kg

DRUGS (2)
  1. AMPHOTERICIN B, LIPOSOME [Suspect]
     Active Substance: AMPHOTERICIN B
     Dosage: 200 MG, EVERY DAY, IV?
     Route: 042
     Dates: start: 20130926, end: 20131010
  2. EMTRICITABINE/TENOFOVIR [Suspect]
     Active Substance: EMTRICITABINE\TENOFOVIR
     Route: 048
     Dates: start: 20130906, end: 20131018

REACTIONS (7)
  - Ocular icterus [None]
  - Hepatitis B [None]
  - Alanine aminotransferase increased [None]
  - Aspartate aminotransferase increased [None]
  - Hepatic enzyme increased [None]
  - Blood bilirubin increased [None]
  - Liver injury [None]

NARRATIVE: CASE EVENT DATE: 20131010
